FAERS Safety Report 7960545-4 (Version None)
Quarter: 2011Q4

REPORT INFORMATION
  Report Type: 
  Country: None (occurrence: None)
  Receive Date: 20111206
  Receipt Date: 20111129
  Transmission Date: 20120403
  Serious: Yes (Hospitalization, Disabling)
  Sender: FDA-Public Use
  Company Number: PHEH2011US008807

PATIENT
  Sex: Female

DRUGS (11)
  1. ONDANSETRON [Concomitant]
     Dosage: UNK UKN, UNK
  2. RIFAMPIN [Suspect]
     Dosage: UNK UKN, UNK
  3. SOLU-MEDROL [Concomitant]
     Dosage: UNK UKN, UNK
     Route: 042
  4. MIRAPEX [Concomitant]
     Indication: MUSCLE SPASTICITY
     Dosage: 0.125 MG, TID
  5. BACLOFEN [Concomitant]
     Indication: MUSCLE SPASTICITY
     Dosage: 10 MG, PRN
     Route: 048
  6. PRAMIPEXOLE DIHYDROCHLORIDE [Concomitant]
     Dosage: UNK UKN, UNK
  7. METRONIDAZOLE [Concomitant]
     Dosage: UNK UKN, UNK
  8. DIAZEPAM [Concomitant]
     Dosage: UNK UKN, UNK
  9. CITALOPRAM [Concomitant]
     Indication: AFFECTIVE DISORDER
     Dosage: 10 MG, QHS
  10. GILENYA [Suspect]
     Indication: MULTIPLE SCLEROSIS
     Dosage: 0.5 MG, QD
     Route: 048
     Dates: start: 20110701
  11. TRILEPTAL [Concomitant]
     Indication: CONVULSION
     Dosage: 300 MG, QHS
     Route: 048

REACTIONS (2)
  - DIZZINESS [None]
  - STAPHYLOCOCCAL INFECTION [None]
